FAERS Safety Report 15640101 (Version 4)
Quarter: 2019Q1

REPORT INFORMATION
  Report Type: Spontaneous
  Country: US (occurrence: US)
  Receive Date: 20181120
  Receipt Date: 20190110
  Transmission Date: 20190417
  Serious: No
  Sender: FDA-Public Use
  Company Number: US-SA-2018SA317571

PATIENT
  Age: 72 Year
  Sex: Male

DRUGS (2)
  1. DUPIXENT [Suspect]
     Active Substance: DUPILUMAB
     Indication: URTICARIA
     Dosage: 600 MG, 1X
     Route: 058
     Dates: start: 20181009
  2. DUPIXENT [Suspect]
     Active Substance: DUPILUMAB
     Dosage: 300 MG, QOW
     Route: 058
     Dates: start: 201810

REACTIONS (5)
  - Product use in unapproved indication [Unknown]
  - Eye pain [Unknown]
  - Eye irritation [Unknown]
  - Ocular hyperaemia [Unknown]
  - Dry eye [Unknown]
